FAERS Safety Report 12147483 (Version 1)
Quarter: 2016Q1

REPORT INFORMATION
  Report Type: Spontaneous
  Country: FR (occurrence: FR)
  Receive Date: 20160304
  Receipt Date: 20160304
  Transmission Date: 20160526
  Serious: Yes (Hospitalization, Other)
  Sender: FDA-Public Use
  Company Number: FR-GLAXOSMITHKLINE-FR2016GSK030646

PATIENT
  Age: 51 Year
  Sex: Male

DRUGS (7)
  1. SIGMACILLINA [Concomitant]
     Dosage: UNK
     Dates: start: 20151126, end: 20151210
  2. INTELENCE [Suspect]
     Active Substance: ETRAVIRINE
     Indication: HIV INFECTION
     Dosage: UNK
     Route: 048
     Dates: start: 20151206, end: 20160106
  3. NORVIR [Suspect]
     Active Substance: RITONAVIR
     Indication: HIV INFECTION
     Dosage: UNK
     Route: 048
     Dates: start: 20151206, end: 20160106
  4. OXACILLINE [Concomitant]
     Active Substance: OXACILLIN SODIUM
     Dosage: UNK
     Dates: start: 20151126, end: 20151224
  5. ISENTRESS [Suspect]
     Active Substance: RALTEGRAVIR POTASSIUM
     Indication: HIV INFECTION
     Dosage: UNK
     Route: 048
     Dates: start: 20151206, end: 20160106
  6. WELLVONE [Suspect]
     Active Substance: ATOVAQUONE
     Indication: HIV INFECTION
     Dosage: UNK
     Route: 048
     Dates: start: 20151120, end: 20160108
  7. PREZISTA [Suspect]
     Active Substance: DARUNAVIR ETHANOLATE
     Indication: HIV INFECTION
     Dosage: UNK
     Route: 048
     Dates: start: 20151206, end: 20160106

REACTIONS (1)
  - Drug reaction with eosinophilia and systemic symptoms [Recovering/Resolving]

NARRATIVE: CASE EVENT DATE: 20160104
